FAERS Safety Report 5692582-7 (Version None)
Quarter: 2008Q2

REPORT INFORMATION
  Report Type: 
  Country: None (occurrence: None)
  Receive Date: 20080401
  Receipt Date: 20080326
  Transmission Date: 20081010
  Serious: Yes (Life-Threatening, Hospitalization, Disabling)
  Sender: FDA-Public Use
  Company Number: 2008SP004108

PATIENT
  Age: 54 Year
  Sex: Female
  Weight: 102.0593 kg

DRUGS (2)
  1. TEMODAR [Suspect]
     Indication: MALIGNANT GLIOMA
     Dosage: 400 MG;QM;
     Dates: end: 20071201
  2. TEMODAR [Suspect]
     Dosage: 400 MG;QD;PO
     Route: 048
     Dates: start: 20080111, end: 20080125

REACTIONS (6)
  - HEPATIC FAILURE [None]
  - MALIGNANT GLIOMA [None]
  - NEOPLASM PROGRESSION [None]
  - OVERDOSE [None]
  - PANCYTOPENIA [None]
  - RASH [None]
